FAERS Safety Report 6745129-8 (Version None)
Quarter: 2010Q2

REPORT INFORMATION
  Report Type: 
  Country: None (occurrence: None)
  Receive Date: 20100526
  Receipt Date: 20100510
  Transmission Date: 20101027
  Serious: Yes (Hospitalization)
  Sender: FDA-Public Use
  Company Number: 1-21840988

PATIENT
  Age: 82 Year
  Sex: Male
  Weight: 77.1115 kg

DRUGS (4)
  1. FERROUS SULFATE TAB [Suspect]
     Indication: BLOOD IRON DECREASED
     Dosage: 325 MG, DAILY, ORAL
     Route: 048
     Dates: start: 20100205, end: 20100305
  2. CARDURA [Concomitant]
  3. FLOMAX [Concomitant]
  4. RANITIDINE [Concomitant]

REACTIONS (8)
  - DYSPNOEA [None]
  - ERUCTATION [None]
  - GASTROINTESTINAL HAEMORRHAGE [None]
  - GASTROOESOPHAGEAL REFLUX DISEASE [None]
  - HYPERTENSION [None]
  - IRON DEFICIENCY [None]
  - PANCYTOPENIA [None]
  - TREATMENT NONCOMPLIANCE [None]
